FAERS Safety Report 11714482 (Version 2)
Quarter: 2018Q3

REPORT INFORMATION
  Report Type: Spontaneous
  Country: GB (occurrence: GB)
  Receive Date: 20151109
  Receipt Date: 20180920
  Transmission Date: 20181010
  Serious: Yes (Hospitalization, Other)
  Sender: FDA-Public Use
  Company Number: GB-TEVA-606424ISR

PATIENT
  Sex: Female

DRUGS (3)
  1. BISOPROLOL [Suspect]
     Active Substance: BISOPROLOL
     Indication: HYPERTENSION
     Route: 048
     Dates: start: 2015
  2. RIVAROXABAN [Suspect]
     Active Substance: RIVAROXABAN
     Dates: start: 2015
  3. ASPIRIN. [Suspect]
     Active Substance: ASPIRIN
     Dates: start: 2015

REACTIONS (6)
  - Delirium [Unknown]
  - Drug prescribing error [Unknown]
  - Fall [Unknown]
  - Haemorrhage intracranial [Unknown]
  - Seizure [Unknown]
  - Cognitive disorder [Unknown]

NARRATIVE: CASE EVENT DATE: 2015
